FAERS Safety Report 17299004 (Version 1)
Quarter: 2020Q1

REPORT INFORMATION
  Report Type: Report from Study
  Country: JP (occurrence: JP)
  Receive Date: 20200121
  Receipt Date: 20200121
  Transmission Date: 20200409
  Serious: Yes (Other)
  Sender: FDA-Public Use
  Company Number: JP-SA-2020SA015462

PATIENT
  Age: 53 Year

DRUGS (2)
  1. DOCETAXEL. [Suspect]
     Active Substance: DOCETAXEL
     Indication: OVARIAN CANCER
     Dosage: 50 MG/M2, ON DAY 1 AND EVERY 21 DAYS THEREAFTER
     Route: 042
  2. PEGYLATED LIPOSOMAL DOXORUBICIN [Suspect]
     Active Substance: DOXORUBICIN
     Indication: OVARIAN CANCER
     Dosage: 25 MG/M2,

REACTIONS (5)
  - Neutropenia [Unknown]
  - Metastases to peritoneum [Unknown]
  - Haemoglobin decreased [Unknown]
  - Ascites [Unknown]
  - Vomiting [Unknown]
